FAERS Safety Report 9850582 (Version 1)
Quarter: 2013Q4

REPORT INFORMATION
  Report Type: Spontaneous
  Country: US (occurrence: None)
  Receive Date: 20131226
  Receipt Date: 20131226
  Transmission Date: 20140711
  Serious: Yes (Hospitalization)
  Sender: FDA-Public Use
  Company Number: PHEH2012US010555

PATIENT
  Age: 71 Year
  Sex: Female
  Weight: 74 kg

DRUGS (3)
  1. AFINITOR (RAD) TABLET, 10MG [Suspect]
     Indication: TUBEROUS SCLEROSIS
     Route: 048
     Dates: start: 20120730
  2. VITAMIN D (ERGOCALCIFEROL) [Concomitant]
  3. LEVICITAM [Concomitant]

REACTIONS (7)
  - Anaemia [None]
  - Abdominal pain [None]
  - Diabetes mellitus [None]
  - Weight decreased [None]
  - Fatigue [None]
  - Decreased appetite [None]
  - Asthenia [None]
